FAERS Safety Report 6540010-1 (Version None)
Quarter: 2009Q4

REPORT INFORMATION
  Report Type: 
  Country: None (occurrence: None)
  Receive Date: 20091231
  Receipt Date: 20091221
  Transmission Date: 20100525
  Serious: Yes (Other)
  Sender: FDA-Public Use
  Company Number: AEUSA200900335

PATIENT
  Age: 57 Year
  Sex: Male

DRUGS (1)
  1. IMMUNE GLOBULIN INTRAVENOUS (HUMAN) [Suspect]
     Indication: MULTIFOCAL MOTOR NEUROPATHY
     Dosage: 0.6 GM/KG;QM;IV
     Route: 042

REACTIONS (2)
  - BLOOD PRESSURE SYSTOLIC INCREASED [None]
  - TRANSIENT ISCHAEMIC ATTACK [None]
